FAERS Safety Report 7686898-2 (Version None)
Quarter: 2011Q3

REPORT INFORMATION
  Report Type: 
  Country: None (occurrence: None)
  Receive Date: 20110816
  Receipt Date: 20110804
  Transmission Date: 20111222
  Serious: Yes (Other)
  Sender: FDA-Public Use
  Company Number: JP-ASTRAZENECA-2011SE48390

PATIENT
  Age: 6 Month
  Sex: Female

DRUGS (2)
  1. MEROPENEM [Suspect]
     Indication: URINARY TRACT INFECTION
  2. CYCLOPHOSPHAMIDE [Concomitant]
     Indication: URINARY TRACT INFECTION

REACTIONS (1)
  - HEPATIC FUNCTION ABNORMAL [None]
